FAERS Safety Report 21043129 (Version 3)
Quarter: 2022Q4

REPORT INFORMATION
  Report Type: Other
  Country: US (occurrence: None)
  Receive Date: 20220705
  Receipt Date: 20221005
  Transmission Date: 20230112
  Serious: Yes (Other)
  Sender: FDA-Public Use
  Company Number: US-ROCHE-3125836

PATIENT
  Age: 40 Year
  Sex: Female
  Weight: 49.032 kg

DRUGS (11)
  1. OCREVUS [Suspect]
     Active Substance: OCRELIZUMAB
     Indication: Relapsing-remitting multiple sclerosis
     Dosage: LAST DOSE ON 15/AUG/2022
     Route: 042
     Dates: start: 201701
  2. BACLOFEN [Suspect]
     Active Substance: BACLOFEN
     Indication: Gait disturbance
     Route: 065
     Dates: start: 2022, end: 2022
  3. DONEPEZIL [Suspect]
     Active Substance: DONEPEZIL
     Indication: Gait disturbance
     Route: 065
     Dates: start: 2022
  4. KLONOPIN [Suspect]
     Active Substance: CLONAZEPAM
     Indication: Anxiety
     Dosage: TAKES 1MG FOR 3 DAYS, THEN 2MG ON 4TH DAY, THEN BACK TO 1MG; AT NIGHT
     Route: 048
     Dates: start: 2000
  5. ALEVE [Concomitant]
     Active Substance: NAPROXEN SODIUM
  6. ZINC [Concomitant]
     Active Substance: ZINC
  7. FISH OIL [Concomitant]
     Active Substance: FISH OIL
  8. VITAMIN D3 [Concomitant]
     Active Substance: CHOLECALCIFEROL
  9. AMITRIPTYLINE [Concomitant]
     Active Substance: AMITRIPTYLINE
  10. EFFEXOR [Concomitant]
     Active Substance: VENLAFAXINE HYDROCHLORIDE
  11. BOTOX [Concomitant]
     Active Substance: ONABOTULINUMTOXINA
     Indication: Migraine

REACTIONS (17)
  - Pneumonia [Recovered/Resolved]
  - Herpes zoster [Unknown]
  - Arthralgia [Recovered/Resolved]
  - Gait disturbance [Recovered/Resolved]
  - Weight decreased [Recovered/Resolved]
  - Decreased appetite [Recovered/Resolved]
  - Abdominal pain upper [Recovered/Resolved]
  - Confusional state [Recovered/Resolved]
  - Sleep disorder [Recovered/Resolved]
  - Vitamin B complex deficiency [Not Recovered/Not Resolved]
  - Protein total decreased [Not Recovered/Not Resolved]
  - Joint dislocation [Recovered/Resolved]
  - Swelling [Recovered/Resolved]
  - Thyroid disorder [Unknown]
  - Fatigue [Recovered/Resolved]
  - Lethargy [Recovered/Resolved]
  - Eye contusion [Recovered/Resolved]

NARRATIVE: CASE EVENT DATE: 20170101
